FAERS Safety Report 5859598-9 (Version None)
Quarter: 2008Q3

REPORT INFORMATION
  Report Type: 
  Country: None (occurrence: None)
  Receive Date: 20080826
  Receipt Date: 20080826
  Transmission Date: 20090109
  Serious: No
  Sender: FDA-Public Use
  Company Number: None

PATIENT
  Age: 57 Year
  Sex: Male
  Weight: 113.3993 kg

DRUGS (2)
  1. SIMVASTATIN [Suspect]
     Indication: LIPIDS ABNORMAL
     Dates: start: 20060801, end: 20061215
  2. LOPID [Suspect]
     Indication: LIPIDS ABNORMAL
     Dates: start: 20020102, end: 20080822

REACTIONS (4)
  - DECREASED ACTIVITY [None]
  - DYSSTASIA [None]
  - MYALGIA [None]
  - PAIN IN EXTREMITY [None]
